FAERS Safety Report 17318184 (Version 4)
Quarter: 2020Q2

REPORT INFORMATION
  Report Type: Report from Study
  Country: FR (occurrence: FR)
  Receive Date: 20200124
  Receipt Date: 20200605
  Transmission Date: 20200713
  Serious: Yes (Hospitalization)
  Sender: FDA-Public Use
  Company Number: FR-JNJFOC-20191239442

PATIENT
  Age: 77 Year
  Sex: Female
  Weight: 68 kg

DRUGS (23)
  1. BISOPROLOL HEMIFUMARATE [Concomitant]
     Active Substance: BISOPROLOL FUMARATE
     Indication: HYPERTENSION
     Route: 048
     Dates: start: 2007
  2. DEXAMETHASONE. [Concomitant]
     Active Substance: DEXAMETHASONE
     Route: 048
  3. VALACICLOVIR [Concomitant]
     Active Substance: VALACYCLOVIR HYDROCHLORIDE
     Indication: VARICELLA ZOSTER VIRUS INFECTION
     Route: 048
     Dates: start: 20160823
  4. NALOXEGOL [Concomitant]
     Active Substance: NALOXEGOL
     Indication: CONSTIPATION
     Route: 048
     Dates: start: 20180827
  5. DARATUMUMAB [Suspect]
     Active Substance: DARATUMUMAB
     Route: 042
  6. LEDERFOLINE [Concomitant]
     Active Substance: LEUCOVORIN CALCIUM
     Indication: FOLATE DEFICIENCY
     Route: 048
     Dates: start: 20160823
  7. FENTANYL. [Concomitant]
     Active Substance: FENTANYL
     Route: 045
     Dates: start: 20180827
  8. ACIDE ZOLEDRONIQUE [Concomitant]
     Active Substance: ZOLEDRONIC ACID
     Indication: OSTEOLYSIS
     Route: 042
     Dates: start: 20170523
  9. DARATUMUMAB [Suspect]
     Active Substance: DARATUMUMAB
     Indication: PLASMA CELL MYELOMA
     Dosage: RECENT DOSE: 19-NOV-2019
     Route: 042
     Dates: start: 20160913
  10. SULFAMETHOXAZOLE W/TRIMETHOPRIM [Concomitant]
     Active Substance: SULFAMETHOXAZOLE\TRIMETHOPRIM
     Indication: PNEUMOCYSTIS JIROVECII PNEUMONIA
     Route: 048
     Dates: start: 20160823
  11. PANTOPRAZOLE [Concomitant]
     Active Substance: PANTOPRAZOLE
     Indication: ABDOMINAL PAIN UPPER
     Route: 048
     Dates: start: 20180827
  12. VENLAFAXINE [Concomitant]
     Active Substance: VENLAFAXINE HYDROCHLORIDE
     Indication: DEPRESSION
     Route: 048
     Dates: start: 20180827
  13. ACIDE URSODESOXYCHOLIQUE BIOGARAN [Concomitant]
     Indication: CHOLECYSTECTOMY
     Route: 048
     Dates: start: 2004
  14. DEXAMETHASONE. [Concomitant]
     Active Substance: DEXAMETHASONE
     Indication: PLASMA CELL MYELOMA
     Dosage: RECENT DOSE: 10-DEC-2019
     Route: 048
     Dates: start: 20160913
  15. AMOXICILLINE                       /00249602/ [Concomitant]
     Active Substance: AMOXICILLIN
     Indication: INFECTION
     Route: 048
     Dates: start: 20160823
  16. PARACETAMOL [Concomitant]
     Active Substance: ACETAMINOPHEN
     Indication: BACK PAIN
     Route: 048
     Dates: start: 201607
  17. METOCLOPRAMIDE. [Concomitant]
     Active Substance: METOCLOPRAMIDE
     Indication: NAUSEA
     Route: 048
     Dates: start: 20160927
  18. ZOPICLONE [Concomitant]
     Active Substance: ZOPICLONE
     Indication: DEPRESSION
     Route: 048
     Dates: start: 20180827
  19. LENALIDOMIDE [Concomitant]
     Active Substance: LENALIDOMIDE
     Indication: PLASMA CELL MYELOMA
     Dosage: 21 DAYS/28 DAYS?RECENT DOSE: 09-DEC-2019
     Route: 048
     Dates: start: 20160913
  20. ACETYLLEUCINE [Concomitant]
     Active Substance: ACETYLLEUCINE
     Indication: HYPERTENSION
     Route: 048
     Dates: start: 1988
  21. SMECTA [Concomitant]
     Active Substance: MONTMORILLONITE
     Indication: DIARRHOEA
     Dosage: 1 SACHET
     Route: 048
     Dates: start: 20191119
  22. ACIDE ACETYLSALICYLIQUE [Concomitant]
     Active Substance: ASPIRIN
     Indication: HYPERTENSION
     Route: 048
     Dates: start: 1988
  23. LENALIDOMIDE [Concomitant]
     Active Substance: LENALIDOMIDE
     Dosage: FOR 21/28 DAYS
     Route: 048

REACTIONS (1)
  - Dementia [Recovered/Resolved]

NARRATIVE: CASE EVENT DATE: 20191217
